FAERS Safety Report 5619879-0 (Version None)
Quarter: 2008Q1

REPORT INFORMATION
  Report Type: 
  Country: None (occurrence: None)
  Receive Date: 20080208
  Receipt Date: 20070522
  Transmission Date: 20080703
  Serious: No
  Sender: FDA-Public Use
  Company Number: US-ABBOTT-07P-163-0371167-00

PATIENT
  Sex: Male
  Weight: 204 kg

DRUGS (3)
  1. HYDROCODONE BITARTRATE AND ACETAMINOPHEN [Suspect]
     Indication: PAIN
     Route: 048
     Dates: start: 20070101, end: 20070401
  2. HYDROCODONE BITARTRATE AND ACETAMINOPHEN [Suspect]
     Route: 048
     Dates: start: 20070401
  3. FENTANYL [Concomitant]
     Indication: PAIN
     Route: 062
     Dates: start: 20070401

REACTIONS (1)
  - DRUG INEFFECTIVE [None]
